FAERS Safety Report 13975735 (Version 1)
Quarter: 2017Q3

REPORT INFORMATION
  Report Type: Spontaneous
  Country: US (occurrence: US)
  Receive Date: 20170915
  Receipt Date: 20170915
  Transmission Date: 20171128
  Serious: No
  Sender: FDA-Public Use
  Company Number: US-PFIZER INC-2017399287

PATIENT
  Age: 63 Year
  Sex: Female
  Weight: 113 kg

DRUGS (5)
  1. SOMAVERT [Suspect]
     Active Substance: PEGVISOMANT
     Dosage: CUT THE DOSE BACK DOWN TO 15MG A DAY
  2. SOMAVERT [Suspect]
     Active Substance: PEGVISOMANT
     Dosage: 30 MG, DAILY
  3. SOMAVERT [Suspect]
     Active Substance: PEGVISOMANT
     Indication: PITUITARY TUMOUR
     Dosage: INITIALLY STARTED ON 15MG INJECTION A DAY
  4. SOMAVERT [Suspect]
     Active Substance: PEGVISOMANT
     Dosage: DOSE WAS INCREASED
  5. SOMAVERT [Suspect]
     Active Substance: PEGVISOMANT
     Dosage: 30MG INJECTION TWICE A DAY IN STOMACH AND LEGS
     Dates: start: 2017

REACTIONS (2)
  - Product use issue [Unknown]
  - Drug ineffective [Not Recovered/Not Resolved]

NARRATIVE: CASE EVENT DATE: 2017
